FAERS Safety Report 9178850 (Version 2)
Quarter: 2014Q1

REPORT INFORMATION
  Report Type: Spontaneous
  Country: US (occurrence: US)
  Receive Date: 20130321
  Receipt Date: 20140128
  Transmission Date: 20141002
  Serious: Yes (Hospitalization, Other)
  Sender: FDA-Public Use
  Company Number: US-BAYER-2013-034406

PATIENT
  Age: 27 Year
  Sex: Female

DRUGS (8)
  1. YAZ [Suspect]
  2. YASMIN [Suspect]
  3. OCELLA [Suspect]
  4. PAXIL CR [Concomitant]
     Dosage: 25 MG, UNK
  5. ZYPREXA [Concomitant]
     Dosage: 7.5 MG, UNK
     Dates: start: 20050910
  6. ADVAIR [Concomitant]
  7. AMBIEN [Concomitant]
  8. Z-PAK [Concomitant]

REACTIONS (4)
  - Cholecystectomy [None]
  - Cholecystitis acute [None]
  - Injury [None]
  - Emotional distress [None]
